FAERS Safety Report 11785824 (Version 1)
Quarter: 2015Q4

REPORT INFORMATION
  Report Type: Spontaneous
  Country: CH (occurrence: CH)
  Receive Date: 20151130
  Receipt Date: 20151130
  Transmission Date: 20160305
  Serious: Yes (Disabling, Other)
  Sender: FDA-Public Use
  Company Number: CH-TEVA-611973ISR

PATIENT
  Age: 75 Year
  Sex: Male
  Weight: 70 kg

DRUGS (16)
  1. ECHINAMED [Concomitant]
     Dosage: 6 DOSAGE FORMS DAILY;
     Route: 048
  2. RIOPAN [Concomitant]
     Active Substance: MAGALDRATE
     Route: 048
  3. MOTILIUM [Concomitant]
     Active Substance: DOMPERIDONE
     Route: 002
  4. PROSTA URGENIN [Concomitant]
     Dosage: 640 MILLIGRAM DAILY;
     Route: 048
  5. IBEROGAST [Concomitant]
     Active Substance: HERBALS
     Dosage: 60 GTT DAILY; GTT DROPS
     Route: 065
  6. IRFEN-400 LACTAB [Suspect]
     Active Substance: IBUPROFEN
     Indication: ANALGESIC THERAPY
     Dosage: 1600 TO 2400MG
     Route: 065
  7. CALCIMAGON D3 [Concomitant]
     Active Substance: CALCIUM\CHOLECALCIFEROL
     Dosage: 2 DOSAGE FORMS DAILY;
     Route: 048
  8. ANGOCIN ANTI INFEKT N [Concomitant]
     Route: 065
  9. FLECTOPARIN [Concomitant]
     Route: 061
  10. CARVON [Concomitant]
     Route: 048
  11. TEBOKAN [Concomitant]
     Dosage: 240 MILLIGRAM DAILY;
     Route: 048
  12. JARSIN [Concomitant]
     Active Substance: ST. JOHN^S WORT
     Indication: PROPHYLAXIS AGAINST GASTROINTESTINAL ULCER
     Dosage: 900 MILLIGRAM DAILY;
     Route: 048
     Dates: end: 201505
  13. CYTOTEC [Suspect]
     Active Substance: MISOPROSTOL
     Indication: PROPHYLAXIS AGAINST GASTROINTESTINAL ULCER
     Dosage: 800 MICROGRAM DAILY;
     Route: 048
  14. EUPHORBIUM COMP [Concomitant]
     Route: 045
  15. RHINOVENT [Concomitant]
     Route: 045
  16. RELAXANE [Concomitant]
     Route: 048

REACTIONS (1)
  - IIIrd nerve paresis [Recovering/Resolving]

NARRATIVE: CASE EVENT DATE: 201508
